FAERS Safety Report 4727275-3 (Version None)
Quarter: 2005Q3

REPORT INFORMATION
  Report Type: 
  Country: None (occurrence: None)
  Receive Date: 20050726
  Receipt Date: 20050714
  Transmission Date: 20060218
  Serious: Yes (Other)
  Sender: FDA-Public Use
  Company Number: 2005102278

PATIENT
  Age: 76 Year
  Sex: Female
  Weight: 72.1219 kg

DRUGS (12)
  1. LIPITOR [Suspect]
     Indication: STENT PLACEMENT
     Dosage: 10 MG (10 MG, 1 IN 1 D), ORAL
     Route: 048
     Dates: start: 19980101
  2. SYNTHROID [Concomitant]
  3. CENTRUM (MINERALS NOS, VITAMIN NOS) [Concomitant]
  4. CALCIUM WITH VITAMIN D (CALCIUM PHOSPHATE, CALCIUM SODIUM LACTATE, ERG [Concomitant]
  5. FOSAMAX [Concomitant]
  6. KLOR-CON [Concomitant]
  7. PRILOSEC [Concomitant]
  8. DIOVAN HCT [Concomitant]
  9. VALSARTAN [Concomitant]
  10. NITROSTAT [Concomitant]
  11. ACETYLSALICYLIC ACID SRT [Concomitant]
  12. TOPROL (METOPROLOL) [Concomitant]

REACTIONS (5)
  - ABASIA [None]
  - BONE DISORDER [None]
  - DYSSTASIA [None]
  - HAIR TEXTURE ABNORMAL [None]
  - MOVEMENT DISORDER [None]
